FAERS Safety Report 9780747 (Version 1)
Quarter: 2013Q4

REPORT INFORMATION
  Report Type: Spontaneous
  Country: IT (occurrence: IT)
  Receive Date: 20131224
  Receipt Date: 20131224
  Transmission Date: 20140711
  Serious: Yes (Other)
  Sender: FDA-Public Use
  Company Number: PHHY2013IT150111

PATIENT
  Age: 43 Year
  Sex: Female

DRUGS (2)
  1. ZOMETA [Suspect]
     Indication: BREAST CANCER STAGE IV
     Dosage: UNK
     Route: 042
     Dates: start: 20101021, end: 20121024
  2. AVASTIN [Suspect]
     Indication: BREAST CANCER STAGE IV
     Dosage: 1 DF, UNK
     Route: 042
     Dates: start: 20101001, end: 20121224

REACTIONS (1)
  - Osteonecrosis of jaw [Not Recovered/Not Resolved]
